FAERS Safety Report 7592457-2 (Version None)
Quarter: 2011Q3

REPORT INFORMATION
  Report Type: 
  Country: None (occurrence: None)
  Receive Date: 20110706
  Receipt Date: 20110627
  Transmission Date: 20111222
  Serious: Yes (Hospitalization, Other)
  Sender: FDA-Public Use
  Company Number: US-BAYER-2011-017399

PATIENT
  Age: 29 Year
  Sex: Female
  Weight: 104.31 kg

DRUGS (7)
  1. NAPROXEN [Concomitant]
  2. IBUPROFEN [Concomitant]
     Dosage: UNK
     Dates: start: 20080101
  3. YAZ [Suspect]
     Indication: ACNE
     Dosage: UNK UNK, QD
     Route: 048
     Dates: start: 20090101, end: 20091201
  4. YASMIN [Suspect]
     Indication: ACNE
     Route: 048
  5. PAXIL [Concomitant]
  6. ADVIL LIQUI-GELS [Concomitant]
     Dosage: UNK
     Dates: start: 19920101
  7. DROSPIRENONE AND ETHINYL ESTRADIOL [Suspect]
     Indication: ACNE
     Route: 048

REACTIONS (3)
  - GALLBLADDER DISORDER [None]
  - PAIN [None]
  - CHOLECYSTITIS CHRONIC [None]
